APPROVED DRUG PRODUCT: DIENESTROL
Active Ingredient: DIENESTROL
Strength: 0.01%
Dosage Form/Route: CREAM;VAGINAL
Application: N006110 | Product #005
Applicant: ORTHO MCNEIL PHARMACEUTICAL INC
Approved: Approved Prior to Jan 1, 1982 | RLD: No | RS: No | Type: DISCN